FAERS Safety Report 16270400 (Version 16)
Quarter: 2020Q3

REPORT INFORMATION
  Report Type: Report from Study
  Country: US (occurrence: US)
  Receive Date: 20190503
  Receipt Date: 20200903
  Transmission Date: 20201102
  Serious: Yes (Hospitalization, Other)
  Sender: FDA-Public Use
  Company Number: US-MALLINCKRODT-T201903356

PATIENT
  Age: 65 Year
  Sex: Female

DRUGS (12)
  1. REPOSITORY CORTICOTROPIN INJECTION [Suspect]
     Active Substance: CORTICOTROPIN
     Indication: FOCAL SEGMENTAL GLOMERULOSCLEROSIS
     Dosage: 80 UNITS / 1 ML, 2 TIMES PER WEEK
     Route: 058
     Dates: start: 20190410, end: 2019
  2. REPOSITORY CORTICOTROPIN INJECTION [Suspect]
     Active Substance: CORTICOTROPIN
     Dosage: 40 UNITS / .5 ML, 1 TIME WEEKLY, WEDNESDAY
     Route: 058
     Dates: start: 2019, end: 20200101
  3. REPOSITORY CORTICOTROPIN INJECTION [Suspect]
     Active Substance: CORTICOTROPIN
     Dosage: 40 UNITS, TWO TIME PER WEEK,
     Route: 058
     Dates: start: 202002
  4. AMILORIDE [Concomitant]
     Active Substance: AMILORIDE
     Indication: FLUID RETENTION
     Dosage: UNK
     Route: 065
     Dates: start: 20190625
  5. ATORVASTATIN [Concomitant]
     Active Substance: ATORVASTATIN
     Indication: PRODUCT USED FOR UNKNOWN INDICATION
     Dosage: UNK
     Route: 065
  6. TRIAMCINOLONE [Concomitant]
     Active Substance: TRIAMCINOLONE
     Indication: PRODUCT USED FOR UNKNOWN INDICATION
     Dosage: UNK
     Route: 065
  7. POTASSIUM [Suspect]
     Active Substance: POTASSIUM
     Indication: PRODUCT USED FOR UNKNOWN INDICATION
     Dosage: UNK
     Route: 065
  8. REPOSITORY CORTICOTROPIN INJECTION [Suspect]
     Active Substance: CORTICOTROPIN
     Dosage: 40 UNITS / 0.5 ML, 2 TIMES PER WEEK (WEDNESDAY/SATURDAY)
     Route: 058
     Dates: start: 2019, end: 2019
  9. LISINOPRIL. [Suspect]
     Active Substance: LISINOPRIL
     Indication: BLOOD PRESSURE ABNORMAL
     Dosage: UNK
     Route: 065
  10. REPOSITORY CORTICOTROPIN INJECTION [Suspect]
     Active Substance: CORTICOTROPIN
     Indication: NEPHROTIC SYNDROME
     Dosage: 80 UNITS / 1 ML, 2 TIMES PER WEEK (WEDNESDAY/SATURDAY)
     Route: 058
     Dates: start: 20190420, end: 2019
  11. REPOSITORY CORTICOTROPIN INJECTION [Suspect]
     Active Substance: CORTICOTROPIN
     Dosage: 40 UNITS / 0.5 ML, 2 TIMES PER WEEK
     Route: 058
     Dates: start: 2019
  12. ETHACRYNIC ACID. [Suspect]
     Active Substance: ETHACRYNIC ACID
     Indication: FLUID RETENTION
     Dosage: 50 MG, BID (50 MG IN AM AND 50 MG IN PM)
     Route: 065

REACTIONS (21)
  - Underdose [Not Recovered/Not Resolved]
  - Weight increased [Recovering/Resolving]
  - Weight fluctuation [Unknown]
  - Abdominal pain upper [Unknown]
  - Swelling [Unknown]
  - Product quality issue [Not Recovered/Not Resolved]
  - Malaise [Unknown]
  - Fear of injection [Unknown]
  - Nausea [Unknown]
  - Retching [Unknown]
  - Nasopharyngitis [Unknown]
  - Dysphagia [Unknown]
  - Haematuria [Unknown]
  - Dehydration [Unknown]
  - Vomiting [Unknown]
  - Injection site bruising [Unknown]
  - Dyspnoea [Unknown]
  - Urinary tract infection [Not Recovered/Not Resolved]
  - Injection site pain [Unknown]
  - Fluid retention [Not Recovered/Not Resolved]
  - Hypotension [Unknown]

NARRATIVE: CASE EVENT DATE: 2019
